FAERS Safety Report 20320291 (Version 6)
Quarter: 2022Q2

REPORT INFORMATION
  Report Type: Spontaneous
  Country: US (occurrence: US)
  Receive Date: 20220111
  Receipt Date: 20220607
  Transmission Date: 20220720
  Serious: Yes (Hospitalization)
  Sender: FDA-Public Use
  Company Number: US-ELI_LILLY_AND_COMPANY-US202112011003

PATIENT
  Age: 61 Year
  Sex: Female

DRUGS (5)
  1. VERZENIO [Suspect]
     Active Substance: ABEMACICLIB
     Indication: Breast cancer
     Dosage: 150 MG, BID
     Route: 048
     Dates: start: 202111, end: 202112
  2. VERZENIO [Suspect]
     Active Substance: ABEMACICLIB
     Dosage: 150 MG, BID
     Route: 048
     Dates: start: 202111
  3. VERZENIO [Suspect]
     Active Substance: ABEMACICLIB
     Dosage: 150 MG, BID
     Route: 048
     Dates: start: 20220323
  4. VERZENIO [Suspect]
     Active Substance: ABEMACICLIB
     Dosage: 100 MG, UNKNOWN
     Route: 048
     Dates: start: 20220414
  5. VERZENIO [Suspect]
     Active Substance: ABEMACICLIB
     Dosage: 100 MG, BID
     Route: 048
     Dates: end: 20220511

REACTIONS (22)
  - Palpitations [Recovered/Resolved]
  - Dyspnoea [Not Recovered/Not Resolved]
  - Troponin increased [Recovered/Resolved]
  - Loss of consciousness [Recovered/Resolved]
  - Troponin decreased [Recovered/Resolved]
  - Blood pressure decreased [Recovered/Resolved]
  - Cardiac disorder [Recovered/Resolved]
  - Malaise [Unknown]
  - Dizziness [Recovered/Resolved]
  - Diarrhoea [Recovered/Resolved]
  - Nausea [Recovered/Resolved]
  - Dyspnoea [Not Recovered/Not Resolved]
  - Hot flush [Not Recovered/Not Resolved]
  - Pyrexia [Recovered/Resolved]
  - Gait inability [Recovered/Resolved]
  - Heart rate increased [Recovered/Resolved]
  - Oropharyngeal pain [Not Recovered/Not Resolved]
  - Fatigue [Not Recovered/Not Resolved]
  - Dehydration [Unknown]
  - Vomiting [Not Recovered/Not Resolved]
  - Nausea [Not Recovered/Not Resolved]
  - Product dose omission issue [Unknown]

NARRATIVE: CASE EVENT DATE: 20211201
